FAERS Safety Report 21239110 (Version 1)
Quarter: 2022Q3

REPORT INFORMATION
  Report Type: Spontaneous
  Country: JP (occurrence: JP)
  Receive Date: 20220822
  Receipt Date: 20220822
  Transmission Date: 20221026
  Serious: Yes (Other)
  Sender: FDA-Public Use
  Company Number: JP-Merck Healthcare KGaA-9343047

PATIENT
  Age: 81 Year
  Sex: Female

DRUGS (2)
  1. ERBITUX [Suspect]
     Active Substance: CETUXIMAB
     Indication: Colon cancer
     Dosage: UNK UNK, UNKNOWN
     Route: 065
  2. ENCORAFENIB [Suspect]
     Active Substance: ENCORAFENIB
     Indication: Colon cancer
     Dosage: UNK, UNKNOWN
     Route: 065

REACTIONS (2)
  - Uveitis [Unknown]
  - Melanocytic naevus [Recovering/Resolving]
